FAERS Safety Report 7806073-8 (Version None)
Quarter: 2011Q4

REPORT INFORMATION
  Report Type: 
  Country: None (occurrence: None)
  Receive Date: 20111011
  Receipt Date: 20110930
  Transmission Date: 20120403
  Serious: Yes (Hospitalization)
  Sender: FDA-Public Use
  Company Number: FR-JNJFOC-20111001310

PATIENT
  Age: 43 Year
  Sex: Female

DRUGS (2)
  1. REMICADE [Suspect]
     Indication: ANKYLOSING SPONDYLITIS
     Route: 042
     Dates: start: 20110704, end: 20110809
  2. SULFASALAZINE [Suspect]
     Indication: ANKYLOSING SPONDYLITIS
     Route: 048
     Dates: start: 20041108, end: 20110620

REACTIONS (1)
  - CUTANEOUS LUPUS ERYTHEMATOSUS [None]
